FAERS Safety Report 6883447-3 (Version None)
Quarter: 2010Q3

REPORT INFORMATION
  Report Type: 
  Country: None (occurrence: None)
  Receive Date: 20100729
  Receipt Date: 20100721
  Transmission Date: 20110219
  Serious: No
  Sender: FDA-Public Use
  Company Number: US-BAXTER-2010BH018827

PATIENT
  Age: 64 Year
  Sex: Female

DRUGS (4)
  1. DIANEAL [Suspect]
     Indication: PERITONEAL DIALYSIS
     Route: 033
     Dates: start: 20100611, end: 20100614
  2. DIANEAL [Suspect]
     Route: 033
     Dates: start: 20100101, end: 20100701
  3. EXTRANEAL [Suspect]
     Indication: PERITONEAL DIALYSIS
     Route: 033
     Dates: start: 20100611, end: 20100614
  4. EXTRANEAL [Suspect]
     Route: 033
     Dates: start: 20100101, end: 20100701

REACTIONS (2)
  - FLUID RETENTION [None]
  - POSTOPERATIVE WOUND INFECTION [None]
